FAERS Safety Report 6024911-9 (Version None)
Quarter: 2008Q4

REPORT INFORMATION
  Report Type: 
  Country: None (occurrence: None)
  Receive Date: 20081231
  Receipt Date: 20081223
  Transmission Date: 20090506
  Serious: Yes (Hospitalization)
  Sender: FDA-Public Use
  Company Number: US-PFIZER INC-2008158669

PATIENT
  Sex: Female
  Weight: 58.957 kg

DRUGS (17)
  1. SILDENAFIL CITRATE [Suspect]
     Dosage: 40 MG, 3X/DAY
     Route: 048
     Dates: start: 20050901
  2. EPOPROSTENOL SODIUM [Concomitant]
     Dosage: 1.5MG SOLUTION, 18.5 NG PER 64.6KG PER MIN. 30000NG/ML, 57ML/HOUR
     Route: 042
     Dates: start: 20070621
  3. AMBIEN [Concomitant]
     Dosage: 12.5 MG, 1 TAB DAILY AT BEDTIME
     Route: 048
     Dates: start: 20070810
  4. AMITIZA [Concomitant]
     Dosage: 24 MCG, 2X/DAY WITH FOOD
     Route: 048
     Dates: start: 20080205
  5. BENTYL [Concomitant]
     Dosage: 10 MG, 2X/DAY
     Route: 048
     Dates: start: 20080205
  6. IBANDRONATE SODIUM [Concomitant]
     Dosage: 150 MG, MONTHLY
     Route: 048
     Dates: start: 20080814
  7. CALCIUM WITH VITAMIN D [Concomitant]
     Dosage: 600-200MG UNIT TABLET 4 TIMES DAILY
     Route: 048
     Dates: start: 20080708
  8. CELLCEPT [Concomitant]
     Dosage: 500 MG, 2 TABS EVERY AM-1 TAB PM
     Route: 048
     Dates: start: 20080708
  9. DIAZEPAM [Concomitant]
     Dosage: 5 MG, 2 TABS AT BEDTIME AS NEEDED
     Route: 048
     Dates: start: 20080523
  10. HYDROXYCHLOROQUINE SULFATE [Concomitant]
     Dosage: 200 MG,
     Route: 048
     Dates: start: 20080810
  11. LEVOTHYROXINE SODIUM [Concomitant]
     Dosage: 100MCG  EVERY OTHER DAY ALTERNATING WITH LEVOTHYROXINE 112MCG TABLET
     Route: 048
     Dates: start: 20060320
  12. LYRICA [Concomitant]
     Dosage: 100 MG, 2X/DAY
     Route: 048
     Dates: start: 20080822
  13. NEXIUM [Concomitant]
     Dosage: 20 MG, 1X/DAY
     Route: 048
     Dates: start: 20080611
  14. OXYGEN [Concomitant]
     Dosage: 2 L, AT HS
     Route: 045
     Dates: start: 20080508
  15. SERTRALINE HYDROCHLORIDE [Concomitant]
     Dosage: 100 MG, DAILY
     Route: 048
     Dates: start: 20050615
  16. TIZANIDINE HYDROCHLORIDE [Concomitant]
     Indication: MUSCLE SPASMS
     Dosage: 4 MG, 2X/DAY PRN
     Route: 048
     Dates: start: 20080205
  17. ACETAMINOPHEN [Concomitant]
     Dosage: 325 MG, 1-2 EVERY 6 HOURS PRN
     Route: 048
     Dates: start: 20080508

REACTIONS (2)
  - DIPLEGIA [None]
  - THROMBOSIS [None]
